FAERS Safety Report 5138192-1 (Version None)
Quarter: 2006Q4

REPORT INFORMATION
  Report Type: 
  Country: None (occurrence: None)
  Receive Date: 20061030
  Receipt Date: 20061018
  Transmission Date: 20070319
  Serious: Yes (Other)
  Sender: FDA-Public Use
  Company Number: JP-AVENTIS-200613273JP

PATIENT
  Age: 57 Year
  Sex: Male
  Weight: 71.8 kg

DRUGS (1)
  1. AMARYL [Suspect]
     Indication: GLYCOSYLATED HAEMOGLOBIN INCREASED
     Route: 048
     Dates: start: 20060911, end: 20061002

REACTIONS (1)
  - BLOOD CREATINE PHOSPHOKINASE INCREASED [None]
